FAERS Safety Report 9056138 (Version 3)
Quarter: 2013Q1

REPORT INFORMATION
  Report Type: Spontaneous
  Country: MX (occurrence: MX)
  Receive Date: 20130205
  Receipt Date: 20130313
  Transmission Date: 20140127
  Serious: Yes (Hospitalization, Other)
  Sender: FDA-Public Use
  Company Number: PHHY2012MX105505

PATIENT
  Age: 74 Year
  Sex: Female

DRUGS (8)
  1. DIOVAN [Suspect]
     Indication: HYPERTENSION
     Dosage: 1 DF, DAILY (160 MG)
     Route: 048
     Dates: start: 201105
  2. ATIVAN [Concomitant]
     Indication: SLEEP DISORDER
     Dosage: 3/4 DF DAILY
  3. ATARAX                                  /CAN/ [Concomitant]
     Indication: STRESS
     Dosage: 1 DF, DAILY
     Dates: start: 2009
  4. CALTRATE WITH VITAMIN D [Concomitant]
     Indication: OSTEOPOROSIS
     Dosage: 1 DF, DAILY
     Dates: start: 201212
  5. VARITON [Concomitant]
     Indication: VARICOSE VEIN
     Dosage: 2 DF, DAILY
     Dates: start: 2012
  6. VITAMIIN C [Concomitant]
     Dosage: 2 DF, DAILY
     Dates: start: 201212
  7. ASPIRIN PROTECT [Concomitant]
     Indication: ANTICOAGULANT THERAPY
     Dosage: UNK UKN, DAILY
     Dates: start: 2007
  8. DOLAC [Concomitant]
     Indication: PAIN
     Dosage: 1 DF, DAILY
     Dates: start: 201302

REACTIONS (16)
  - Ovarian cyst [Not Recovered/Not Resolved]
  - Gallbladder disorder [Not Recovered/Not Resolved]
  - Cholelithiasis [Not Recovered/Not Resolved]
  - Functional gastrointestinal disorder [Not Recovered/Not Resolved]
  - Maculopathy [Not Recovered/Not Resolved]
  - Depression [Not Recovered/Not Resolved]
  - Flatulence [Not Recovered/Not Resolved]
  - Dyspepsia [Not Recovered/Not Resolved]
  - Abdominal discomfort [Not Recovered/Not Resolved]
  - Nasopharyngitis [Not Recovered/Not Resolved]
  - Limb discomfort [Not Recovered/Not Resolved]
  - Pain [Not Recovered/Not Resolved]
  - Pyrexia [Not Recovered/Not Resolved]
  - Discomfort [Not Recovered/Not Resolved]
  - Insomnia [Not Recovered/Not Resolved]
  - Hypertension [Not Recovered/Not Resolved]
